FAERS Safety Report 25155646 (Version 1)
Quarter: 2025Q2

REPORT INFORMATION
  Report Type: Spontaneous
  Country: VN (occurrence: VN)
  Receive Date: 20250403
  Receipt Date: 20250403
  Transmission Date: 20250716
  Serious: Yes (Other)
  Sender: TEVA
  Company Number: VN-Pharmaand-2025000252

PATIENT
  Age: 59 Year
  Sex: Female

DRUGS (1)
  1. RIBOMUSTIN [Suspect]
     Active Substance: BENDAMUSTINE HYDROCHLORIDE
     Indication: Plasma cell myeloma
     Route: 042

REACTIONS (3)
  - Plasma cell myeloma refractory [Unknown]
  - Bone marrow failure [Unknown]
  - Tumour compression [Unknown]
